FAERS Safety Report 24551824 (Version 1)
Quarter: 2024Q4

REPORT INFORMATION
  Report Type: Report from Study
  Country: ES (occurrence: ES)
  Receive Date: 20241026
  Receipt Date: 20241026
  Transmission Date: 20250115
  Serious: Yes (Hospitalization)
  Sender: ACCORD
  Company Number: None

PATIENT
  Age: 64 Year
  Sex: Female

DRUGS (6)
  1. FLUOROURACIL [Suspect]
     Active Substance: FLUOROURACIL
     Indication: Product used for unknown indication
     Dosage: 50 MG/ML, 10 ML 1 VIAL
     Dates: start: 20240508, end: 20240605
  2. OXALIPLATIN [Suspect]
     Active Substance: OXALIPLATIN
     Indication: Product used for unknown indication
     Dosage: 5 MG/ML., 40 ML 1 VIAL
     Dates: start: 20240508, end: 20240605
  3. IRINOTECAN [Suspect]
     Active Substance: IRINOTECAN
     Indication: Product used for unknown indication
     Dosage: 20MG/ML, 50 ML 1 VIAL
     Dates: start: 20240508, end: 20240605
  4. OMEPRAZOLE [Concomitant]
     Active Substance: OMEPRAZOLE
     Dosage: 40 MG, 1 EVERY 24 HOURS, 28?CAPSULES (BOTTLE)
     Dates: start: 20240425
  5. EZETIMIBE [Concomitant]
     Active Substance: EZETIMIBE
     Dosage: 1 EVERY 24 HOURS
     Dates: start: 20231129
  6. FENTANYL [Concomitant]
     Active Substance: FENTANYL
     Dosage: 25 MICROGRAMS/HOUR TRANSDERMAL PATCHES EFG , 5 PATCHES, 1 EVERY 3 DAYS
     Dates: start: 20240425

REACTIONS (1)
  - Hypertransaminasaemia [Recovered/Resolved]

NARRATIVE: CASE EVENT DATE: 20240523
